FAERS Safety Report 9962467 (Version 1)
Quarter: 2014Q1

REPORT INFORMATION
  Report Type: Report from Study
  Country: US (occurrence: US)
  Receive Date: 20140305
  Receipt Date: 20140305
  Transmission Date: 20141002
  Serious: No
  Sender: FDA-Public Use
  Company Number: US-ABBVIE-13P-163-1116716-00

PATIENT
  Age: 21 Year
  Sex: Male
  Weight: 81.72 kg

DRUGS (5)
  1. HUMIRA [Suspect]
     Indication: CROHN^S DISEASE
     Dosage: 80 MILLIGRAM PARTIAL LOADING DOSE
     Dates: start: 20130703, end: 20130703
  2. HUMIRA [Suspect]
     Dosage: 80 MILLIGRAM PARTIAL LOADING DOSE
     Dates: start: 20130704, end: 20130704
  3. PENTASA [Concomitant]
     Indication: CROHN^S DISEASE
  4. AZIATHIOPRINE [Concomitant]
     Indication: CROHN^S DISEASE
  5. PREDNISONE [Concomitant]
     Indication: CROHN^S DISEASE

REACTIONS (2)
  - Abdominal distension [Recovered/Resolved]
  - Abdominal pain [Recovered/Resolved]
